FAERS Safety Report 21140920 (Version 1)
Quarter: 2022Q3

REPORT INFORMATION
  Report Type: Spontaneous
  Country: AU (occurrence: None)
  Receive Date: 20220728
  Receipt Date: 20220728
  Transmission Date: 20221026
  Serious: Yes (Other)
  Sender: FDA-Public Use
  Company Number: 2022A263359

PATIENT
  Age: 48 Year
  Sex: Female

DRUGS (5)
  1. FULVESTRANT [Suspect]
     Active Substance: FULVESTRANT
     Route: 030
     Dates: start: 202203, end: 202203
  2. PALBOCICLIB [Concomitant]
     Active Substance: PALBOCICLIB
     Dates: start: 202102, end: 202203
  3. ZOLADEX [Concomitant]
     Active Substance: GOSERELIN ACETATE
     Dates: start: 202102, end: 202203
  4. FEMARA [Concomitant]
     Active Substance: LETROZOLE
     Dates: start: 202102, end: 202203
  5. ALPELISIB [Concomitant]
     Active Substance: ALPELISIB
     Dates: start: 202203, end: 202207

REACTIONS (1)
  - Malignant neoplasm progression [Unknown]
